FAERS Safety Report 25366953 (Version 1)
Quarter: 2025Q2

REPORT INFORMATION
  Report Type: Spontaneous
  Country: GB (occurrence: GB)
  Receive Date: 20250528
  Receipt Date: 20250528
  Transmission Date: 20250717
  Serious: Yes (Death, Life-Threatening, Other)
  Sender: ACCORD
  Company Number: None

PATIENT
  Age: 83 Year
  Sex: Female

DRUGS (1)
  1. CLOPIDOGREL [Suspect]
     Active Substance: CLOPIDOGREL BISULFATE
     Indication: Cerebrovascular accident

REACTIONS (3)
  - Jaundice [Unknown]
  - Cholestasis [Unknown]
  - Drug-induced liver injury [Fatal]

NARRATIVE: CASE EVENT DATE: 20240704
